FAERS Safety Report 18023441 (Version 1)
Quarter: 2020Q3

REPORT INFORMATION
  Report Type: Spontaneous
  Country: US (occurrence: US)
  Receive Date: 20200715
  Receipt Date: 20200715
  Transmission Date: 20201103
  Serious: No
  Sender: FDA-Public Use
  Company Number: US-LEADINGPHARMA-US-2020LEASPO00107

PATIENT
  Age: 55 Year
  Sex: Female
  Weight: 117 kg

DRUGS (2)
  1. LORAZEPAM TABLETS USP [Suspect]
     Active Substance: LORAZEPAM
     Indication: PRODUCT USED FOR UNKNOWN INDICATION
     Dosage: BY CUTTING INTO 02 HALVES
     Route: 048
     Dates: start: 20200703, end: 20200706
  2. LORAZEPAM TABLETS USP [Suspect]
     Active Substance: LORAZEPAM
     Route: 048
     Dates: start: 2008

REACTIONS (8)
  - Obsessive thoughts [Recovered/Resolved]
  - Nervousness [Recovered/Resolved]
  - Feeling abnormal [Recovered/Resolved]
  - Product formulation issue [Unknown]
  - Depression [Recovered/Resolved]
  - Wrong technique in product usage process [Unknown]
  - Drug intolerance [Recovered/Resolved]
  - Incorrect product administration duration [Unknown]

NARRATIVE: CASE EVENT DATE: 20200703
